FAERS Safety Report 15883997 (Version 1)
Quarter: 2019Q1

REPORT INFORMATION
  Report Type: Spontaneous
  Country: US (occurrence: US)
  Receive Date: 20190107
  Receipt Date: 20190107
  Transmission Date: 20190417
  Serious: No
  Sender: FDA-Public Use
  Company Number: None

PATIENT
  Age: 39 Year
  Sex: Male

DRUGS (1)
  1. ODEFSEY [Suspect]
     Active Substance: EMTRICITABINE\RILPIVIRINE HYDROCHLORIDE\TENOFOVIR ALAFENAMIDE FUMARATE
     Dosage: 200/25/25MG DAILY ORAL
     Route: 048
     Dates: start: 201801

REACTIONS (5)
  - Insurance issue [None]
  - Therapy cessation [None]
  - Nasopharyngitis [None]
  - Rhinorrhoea [None]
  - Nasal congestion [None]

NARRATIVE: CASE EVENT DATE: 20190104
